FAERS Safety Report 7283984-6 (Version None)
Quarter: 2011Q1

REPORT INFORMATION
  Report Type: 
  Country: None (occurrence: None)
  Receive Date: 20110131
  Receipt Date: 20110114
  Transmission Date: 20110831
  Serious: Yes (Other)
  Sender: FDA-Public Use
  Company Number: 014421

PATIENT
  Sex: Female
  Weight: 86.1 kg

DRUGS (6)
  1. CIMZIA [Suspect]
     Indication: CROHN'S DISEASE
     Dosage: (400 MG 1X/MONTH SUBCUTANEOUS) (400 MG 1X/2 WEEKS SUBCUTANEOUS)
     Route: 058
     Dates: start: 20090715
  2. DARVOCET [Concomitant]
  3. CRESTOR [Concomitant]
  4. CYMBALTA [Concomitant]
  5. VITAMIN D [Concomitant]
  6. UNKNOWN [Suspect]
     Indication: CROHN'S DISEASE

REACTIONS (6)
  - GASTRIC DISORDER [None]
  - CROHN'S DISEASE [None]
  - ABDOMINAL HERNIA [None]
  - OFF LABEL USE [None]
  - PHARYNGEAL DISORDER [None]
  - ASTHENIA [None]
